FAERS Safety Report 21724729 (Version 1)
Quarter: 2022Q4

REPORT INFORMATION
  Report Type: Report from Study
  Country: US (occurrence: US)
  Receive Date: 20221214
  Receipt Date: 20221214
  Transmission Date: 20230113
  Serious: No
  Sender: FDA-Public Use
  Company Number: US-ABBVIE-4235328

PATIENT
  Sex: Female

DRUGS (3)
  1. VENCLEXTA [Suspect]
     Active Substance: VENETOCLAX
     Indication: B-cell prolymphocytic leukaemia
     Route: 048
     Dates: start: 202007
  2. VENCLEXTA [Suspect]
     Active Substance: VENETOCLAX
     Indication: B-cell prolymphocytic leukaemia
     Route: 048
  3. PAXLOVID [Concomitant]
     Active Substance: NIRMATRELVIR\RITONAVIR
     Indication: Product used for unknown indication
     Route: 065

REACTIONS (3)
  - COVID-19 [Unknown]
  - Sinusitis [Unknown]
  - White blood cell count abnormal [Unknown]
